FAERS Safety Report 8224489-5 (Version None)
Quarter: 2012Q1

REPORT INFORMATION
  Report Type: 
  Country: None (occurrence: None)
  Receive Date: 20120321
  Receipt Date: 20120313
  Transmission Date: 20120608
  Serious: Yes (Hospitalization)
  Sender: FDA-Public Use
  Company Number: FR-UCBSA-053361

PATIENT
  Age: 66 Year
  Sex: Male

DRUGS (3)
  1. STALEVO 100 [Concomitant]
  2. NEUPRO [Suspect]
     Indication: PARKINSON'S DISEASE
     Dosage: DAILY DOSE :8 MG
     Route: 062
     Dates: start: 20110506
  3. AMANTADINE HCL [Concomitant]

REACTIONS (2)
  - ABNORMAL BEHAVIOUR [None]
  - DEPENDENCE [None]
